FAERS Safety Report 12178045 (Version 1)
Quarter: 2016Q1

REPORT INFORMATION
  Report Type: Spontaneous
  Country: US (occurrence: None)
  Receive Date: 20160314
  Receipt Date: 20160314
  Transmission Date: 20160526
  Serious: Yes (Hospitalization)
  Sender: FDA-Public Use
  Company Number: None

PATIENT
  Age: 64 Year
  Sex: Female
  Weight: 89.4 kg

DRUGS (15)
  1. AMBIEN [Concomitant]
     Active Substance: ZOLPIDEM TARTRATE
  2. MAGNESIUM SUPPLEMENTS [Concomitant]
  3. SERTRALINE [Concomitant]
     Active Substance: SERTRALINE HYDROCHLORIDE
  4. ALTERNATIVE THERAPIES [Concomitant]
  5. ALPRAZOLAM. [Concomitant]
     Active Substance: ALPRAZOLAM
  6. METFORMIN [Concomitant]
     Active Substance: METFORMIN HYDROCHLORIDE
  7. GLIMEPIRIDE. [Concomitant]
     Active Substance: GLIMEPIRIDE
  8. ASPIRIN. [Concomitant]
     Active Substance: ASPIRIN
  9. NSAIDS [Concomitant]
     Active Substance: UNSPECIFIED INGREDIENT
  10. MELATONIN [Concomitant]
     Active Substance: MELATONIN
  11. BOSUTINIB [Suspect]
     Active Substance: BOSUTINIB
     Indication: CHRONIC MYELOID LEUKAEMIA
     Route: 048
     Dates: start: 20140429, end: 20151229
  12. FISH OIL [Concomitant]
     Active Substance: FISH OIL
  13. B-VITAMIN COMPLEX [Concomitant]
  14. CALCIUM CITRATE [Concomitant]
     Active Substance: CALCIUM CITRATE
  15. DIETARY SUPPLEMENTS [Concomitant]
     Active Substance: DIETARY SUPPLEMENT

REACTIONS (4)
  - Basal ganglia haemorrhage [None]
  - Cerebral haemorrhage [None]
  - Brain stem haemorrhage [None]
  - Conjunctival haemorrhage [None]

NARRATIVE: CASE EVENT DATE: 20151229
